FAERS Safety Report 18962812 (Version 1)
Quarter: 2021Q1

REPORT INFORMATION
  Report Type: Spontaneous
  Country: RU (occurrence: RU)
  Receive Date: 20210303
  Receipt Date: 20210303
  Transmission Date: 20210420
  Serious: Yes (Death, Hospitalization, Other)
  Sender: FDA-Public Use
  Company Number: RU-GLAXOSMITHKLINE-RU2021GSK050242

PATIENT
  Sex: Male

DRUGS (17)
  1. PREDNISOLONE. [Suspect]
     Active Substance: PREDNISOLONE
     Indication: STEROID THERAPY
     Dosage: 300 MG
     Route: 042
  2. PREDNISOLONE. [Suspect]
     Active Substance: PREDNISOLONE
     Dosage: 150 MG
     Route: 042
     Dates: start: 201703
  3. PREDNISOLONE. [Suspect]
     Active Substance: PREDNISOLONE
     Dosage: 30 UNK
     Route: 048
     Dates: start: 201703
  4. CEFTRIAXONE. [Suspect]
     Active Substance: CEFTRIAXONE
     Indication: ANTIBIOTIC THERAPY
     Dosage: 2 G, PER DAY
     Route: 042
     Dates: start: 201703
  5. METHOTREXATE. [Suspect]
     Active Substance: METHOTREXATE
     Indication: IMMUNOSUPPRESSION
     Dosage: 25 MG, WE
  6. FENOTEROL [Suspect]
     Active Substance: FENOTEROL
     Indication: ANTIINFLAMMATORY THERAPY
     Dosage: UNK
     Dates: start: 201703
  7. PREDNISOLONE. [Suspect]
     Active Substance: PREDNISOLONE
     Indication: IMMUNOSUPPRESSION
     Dosage: 30 MG
     Route: 048
  8. CIPROFLOXACIN. [Suspect]
     Active Substance: CIPROFLOXACIN
     Indication: ANTIBIOTIC THERAPY
     Dosage: 800 MG PER DAY
     Route: 042
     Dates: start: 201703
  9. AMIKACIN SULFATE. [Suspect]
     Active Substance: AMIKACIN SULFATE
     Indication: ANTIBIOTIC THERAPY
     Dosage: 1 G, PER DAY
     Dates: start: 201703
  10. BUDESONIDE. [Suspect]
     Active Substance: BUDESONIDE
     Indication: ANTIINFLAMMATORY THERAPY
     Dosage: 2000 UG, PER DAY
     Dates: start: 201703
  11. FLUTICASONE PROPIONATE+SALMETEROL XINAFOATE [Suspect]
     Active Substance: FLUTICASONE PROPIONATE\SALMETEROL XINAFOATE
     Indication: ASTHMA
     Dosage: 250/25 MG 2 DF, BID
     Route: 055
     Dates: start: 2006
  12. CEFOPERAZONE [Suspect]
     Active Substance: CEFOPERAZONE
     Indication: ANTIBIOTIC THERAPY
     Dosage: 4 G,PER DAY
     Dates: start: 201703
  13. PREDNISOLONE. [Suspect]
     Active Substance: PREDNISOLONE
     Indication: LUNG OPACITY
     Dosage: 30 MG, PER DAY
     Dates: start: 2009
  14. PREDNISOLONE. [Suspect]
     Active Substance: PREDNISOLONE
     Indication: ANTIINFLAMMATORY THERAPY
     Dosage: 10 MG, PER DAY
  15. FLUTICASONE PROPIONATE+SALMETEROL XINAFOATE [Suspect]
     Active Substance: FLUTICASONE PROPIONATE\SALMETEROL XINAFOATE
     Dosage: 250/25 UG 4 DF, PER DAY
     Route: 055
  16. TIOTROPIUM BROMIDE [Suspect]
     Active Substance: TIOTROPIUM BROMIDE
     Indication: ASTHMA
     Dosage: 18 UG, PER DAY
  17. IPRATROPIUM BROMIDE. [Suspect]
     Active Substance: IPRATROPIUM BROMIDE
     Indication: ANTIINFLAMMATORY THERAPY
     Dosage: UNK
     Route: 055
     Dates: start: 201703

REACTIONS (10)
  - Bronchiectasis [Unknown]
  - Disease progression [Fatal]
  - Therapeutic product effect incomplete [Unknown]
  - Asthma [Fatal]
  - Sputum purulent [Unknown]
  - Lung abscess [Unknown]
  - Pneumonia klebsiella [Fatal]
  - Pneumonia [Fatal]
  - Respiratory failure [Unknown]
  - Drug ineffective [Unknown]

NARRATIVE: CASE EVENT DATE: 201703
